FAERS Safety Report 10155068 (Version 3)
Quarter: 2014Q3

REPORT INFORMATION
  Report Type: Spontaneous
  Country: FR (occurrence: FR)
  Receive Date: 20140506
  Receipt Date: 20140716
  Transmission Date: 20150326
  Serious: Yes (Hospitalization, Other)
  Sender: FDA-Public Use
  Company Number: FR-PFIZER INC-2014115626

PATIENT
  Age: 54 Year
  Sex: Male

DRUGS (5)
  1. OLMETEC [Suspect]
     Active Substance: OLMESARTAN MEDOXOMIL
     Indication: HYPERTENSION
     Dosage: 40 MG, 1X/DAY
     Route: 048
     Dates: start: 20120301, end: 20140314
  2. FLECAINE [Suspect]
     Active Substance: FLECAINIDE
     Indication: ARRHYTHMIA
     Dosage: 150 MG, 1X/DAY
     Route: 048
     Dates: start: 200610, end: 200909
  3. TENORMIN [Suspect]
     Active Substance: ATENOLOL
     Indication: HYPERTENSION
     Dosage: 100 MG, 1X/DAY
     Route: 048
     Dates: start: 19960101, end: 20140314
  4. TENORMIN [Concomitant]
     Active Substance: ATENOLOL
     Dosage: 100 MG
     Dates: start: 19960101, end: 20140314
  5. FLECAINE [Suspect]
     Active Substance: FLECAINIDE
     Dosage: 150 MG, 1X/DAY
     Route: 048
     Dates: start: 20131118, end: 20140314

REACTIONS (12)
  - Condition aggravated [Unknown]
  - Diarrhoea [Recovered/Resolved]
  - Duodenitis [Unknown]
  - Gastritis [Unknown]
  - Renal failure acute [Unknown]
  - Vomiting [Unknown]
  - Colitis [Unknown]
  - Helicobacter test positive [Unknown]
  - Dehydration [Unknown]
  - Weight decreased [Unknown]
  - Enteritis [Unknown]
  - Gastrooesophageal reflux disease [Unknown]

NARRATIVE: CASE EVENT DATE: 20131210
